FAERS Safety Report 8868772 (Version 1)
Quarter: 2012Q4

REPORT INFORMATION
  Report Type: 
  Country: US (occurrence: US)
  Receive Date: 20121024
  Receipt Date: 20121024
  Transmission Date: 20130627
  Serious: No
  Sender: FDA-Public Use
  Company Number: US-BAYER-2012-111667

PATIENT
  Age: 87 Year
  Sex: Male
  Weight: 70.3 kg

DRUGS (12)
  1. ALEVE CAPLET/TABLET,MIDOL EXTENDED RELIEF CAPLET [Suspect]
     Indication: PAIN RELIEF
     Dosage: 1 DF, BID
     Route: 048
     Dates: start: 2010
  2. METFORMIN [Concomitant]
  3. AMLODIPINE [Concomitant]
  4. CALCIUM [Concomitant]
  5. FISH OIL [Concomitant]
  6. FLUID TABLET 40MG [Concomitant]
  7. PRILOSEC [Concomitant]
  8. IRON [Concomitant]
  9. SIMVASTATIN [Concomitant]
  10. GLIMEPIRIDE [Concomitant]
  11. PROPANOLOL [Concomitant]
  12. IBUPROFEN [Concomitant]

REACTIONS (1)
  - No adverse event [None]
